FAERS Safety Report 25343724 (Version 1)
Quarter: 2025Q2

REPORT INFORMATION
  Report Type: Spontaneous
  Country: US (occurrence: None)
  Receive Date: 20250521
  Receipt Date: 20250521
  Transmission Date: 20250716
  Serious: Yes (Hospitalization)
  Sender: FDA-CTU
  Company Number: None

PATIENT
  Age: 65 Year
  Sex: Male
  Weight: 99.9 kg

DRUGS (3)
  1. DASATINIB [Suspect]
     Active Substance: DASATINIB
     Indication: Chronic myeloid leukaemia
     Dosage: 80 MG/MG DAILY ORAL
     Route: 048
     Dates: start: 20250509, end: 20250516
  2. Dasatinib 100mg [Concomitant]
     Dates: start: 20241101, end: 20250421
  3. DASATINIB [Concomitant]
     Active Substance: DASATINIB
     Dates: start: 20250509, end: 20250516

REACTIONS (1)
  - Pleural effusion [None]

NARRATIVE: CASE EVENT DATE: 20250516
